FAERS Safety Report 8512005-X (Version None)
Quarter: 2012Q3

REPORT INFORMATION
  Report Type: 
  Country: None (occurrence: None)
  Receive Date: 20120716
  Receipt Date: 20120711
  Transmission Date: 20120928
  Serious: Yes (Hospitalization)
  Sender: FDA-Public Use
  Company Number: PHHY2012FR055010

PATIENT
  Sex: Male
  Weight: 77 kg

DRUGS (7)
  1. MAXEPA [Concomitant]
     Dosage: 2 DF, BID
  2. DIGOXIN [Concomitant]
  3. VALSARTAN [Concomitant]
     Dosage: 160 MG, UNK
  4. EVEROLIMUS [Suspect]
     Indication: RENAL CANCER METASTATIC
     Dosage: 5 MG, DAILY
     Route: 048
     Dates: start: 20111108, end: 20120402
  5. ATORVASTATIN [Concomitant]
     Indication: HYPERCHOLESTEROLAEMIA
  6. PREVISCAN [Concomitant]
  7. LEVOTHYROXINE SODIUM [Concomitant]
     Dosage: 50 UG, UNK

REACTIONS (2)
  - ANGIODERMATITIS [None]
  - SKIN ULCER [None]
